FAERS Safety Report 24792999 (Version 2)
Quarter: 2025Q1

REPORT INFORMATION
  Report Type: Spontaneous
  Country: US (occurrence: US)
  Receive Date: 20241231
  Receipt Date: 20250103
  Transmission Date: 20250409
  Serious: No
  Sender: SANOFI AVENTIS
  Company Number: US-SA-2024SA384743

PATIENT
  Age: 3 Year
  Sex: Male
  Weight: 32.73 kg

DRUGS (6)
  1. CEREZYME [Suspect]
     Active Substance: IMIGLUCERASE
     Indication: Gaucher^s disease
     Dosage: 1600 U, QOW
     Route: 042
     Dates: start: 20190713
  2. SODIUM CHLORIDE [Concomitant]
     Active Substance: SODIUM CHLORIDE
  3. EPINEPHRINE [Concomitant]
     Active Substance: EPINEPHRINE
  4. STERILE WATER [Concomitant]
     Active Substance: WATER
  5. DIPHENHYDRAMINE [Concomitant]
     Active Substance: DIPHENHYDRAMINE
  6. SODIUM CHLORIDE [Concomitant]
     Active Substance: SODIUM CHLORIDE

REACTIONS (2)
  - Infusion site extravasation [Unknown]
  - Poor venous access [Unknown]

NARRATIVE: CASE EVENT DATE: 20241231
